FAERS Safety Report 10065562 (Version 2)
Quarter: 2014Q2

REPORT INFORMATION
  Report Type: Spontaneous
  Country: FR (occurrence: FR)
  Receive Date: 20140408
  Receipt Date: 20140415
  Transmission Date: 20141212
  Serious: Yes (Hospitalization, Other)
  Sender: FDA-Public Use
  Company Number: FR-ASTRAZENECA-2014SE23833

PATIENT
  Age: 8021 Day
  Sex: Male

DRUGS (9)
  1. XEROQUEL [Suspect]
     Indication: MENTAL DISORDER
     Route: 048
     Dates: start: 20131116, end: 20131119
  2. XEROQUEL [Suspect]
     Indication: MENTAL DISORDER
     Route: 048
     Dates: start: 20131119
  3. XEROQUEL [Suspect]
     Indication: MENTAL DISORDER
     Route: 048
  4. LOXAPAC [Suspect]
     Indication: MENTAL DISORDER
     Route: 048
     Dates: start: 20131026
  5. LOXAPAC [Suspect]
     Indication: MENTAL DISORDER
     Route: 048
     Dates: start: 20131116, end: 20131119
  6. LOXAPAC [Suspect]
     Indication: MENTAL DISORDER
     Route: 048
     Dates: start: 20131119, end: 20131207
  7. OLANZAPINE [Suspect]
     Indication: MENTAL DISORDER
     Route: 048
     Dates: start: 20131030, end: 20131031
  8. OLANZAPINE [Suspect]
     Indication: MENTAL DISORDER
     Route: 048
     Dates: start: 20131031, end: 20131207
  9. PARKINANE [Concomitant]
     Route: 048
     Dates: start: 20131116, end: 20131207

REACTIONS (4)
  - Catatonia [Recovering/Resolving]
  - Hypertension [Recovering/Resolving]
  - Salivary hypersecretion [Recovering/Resolving]
  - Blood creatine phosphokinase increased [Unknown]
